FAERS Safety Report 5663213-7 (Version None)
Quarter: 2008Q1

REPORT INFORMATION
  Report Type: 
  Country: None (occurrence: None)
  Receive Date: 20080313
  Receipt Date: 20080303
  Transmission Date: 20080703
  Serious: Yes (Other)
  Sender: FDA-Public Use
  Company Number: TH-PFIZER INC-2008020101

PATIENT
  Sex: Female
  Weight: 58 kg

DRUGS (3)
  1. SU-011,248 [Suspect]
     Indication: RENAL CELL CARCINOMA
     Dosage: TEXT:50
     Route: 048
     Dates: start: 20070124, end: 20071022
  2. SU-011,248 [Suspect]
     Dosage: TEXT:37.5
     Route: 048
     Dates: start: 20071106, end: 20080121
  3. AMLODIPINE [Concomitant]
     Indication: HYPERTENSION
     Route: 048

REACTIONS (1)
  - PROTEINURIA [None]
